FAERS Safety Report 11155664 (Version 1)
Quarter: 2015Q2

REPORT INFORMATION
  Report Type: Spontaneous
  Country: US (occurrence: US)
  Receive Date: 20150602
  Receipt Date: 20150602
  Transmission Date: 20150821
  Serious: Yes (Other)
  Sender: FDA-Public Use
  Company Number: US-ACTAVIS-2015-10680

PATIENT
  Sex: Female

DRUGS (1)
  1. DOXYCYCLINE HYCLATE (ACTAVIS LABORATORIES FL) [Suspect]
     Active Substance: DOXYCYCLINE HYCLATE
     Indication: BLEPHARITIS
     Dosage: UNK, UNKNOWN
     Route: 065

REACTIONS (12)
  - Throat irritation [Unknown]
  - Dysphagia [Unknown]
  - Choking sensation [Unknown]
  - Nasal congestion [Unknown]
  - Cough [Unknown]
  - Nausea [Unknown]
  - Swollen tongue [Unknown]
  - Pain [Unknown]
  - Product use issue [Unknown]
  - Pharyngeal oedema [Unknown]
  - Glossodynia [Unknown]
  - Pruritus [Unknown]
